FAERS Safety Report 6428710-5 (Version None)
Quarter: 2009Q4

REPORT INFORMATION
  Report Type: 
  Country: None (occurrence: None)
  Receive Date: 20091103
  Receipt Date: 20091021
  Transmission Date: 20100525
  Serious: Yes (Death)
  Sender: FDA-Public Use
  Company Number: AE 2009-143

PATIENT
  Age: 50 Year
  Sex: Male

DRUGS (8)
  1. FAZACLO ODT [Suspect]
     Indication: BIPOLAR DISORDER
     Dosage: 200 MG DAILY PO
     Route: 048
     Dates: start: 20050831, end: 20091012
  2. HALDOL [Concomitant]
  3. MIRALAX [Concomitant]
  4. COGENTIN [Concomitant]
  5. PRILOSEC [Concomitant]
  6. MEGACE [Concomitant]
  7. FERROUS SULFATE TAB [Concomitant]
  8. METHIMAZOLE [Concomitant]

REACTIONS (3)
  - ACUTE RESPIRATORY FAILURE [None]
  - CARDIAC ARREST [None]
  - PNEUMONIA [None]
